FAERS Safety Report 18972852 (Version 1)
Quarter: 2021Q1

REPORT INFORMATION
  Report Type: Spontaneous
  Country: US (occurrence: US)
  Receive Date: 20210305
  Receipt Date: 20210305
  Transmission Date: 20210420
  Serious: Yes (Other)
  Sender: FDA-Public Use
  Company Number: None

PATIENT
  Age: 53 Year
  Sex: Male
  Weight: 133.5 kg

DRUGS (1)
  1. TRIFERIC [Suspect]
     Active Substance: FERRIC PYROPHOSPHATE CITRATE
     Indication: PRODUCT USED FOR UNKNOWN INDICATION
     Dosage: FREQUENCY:  EVERY DIALYSIS TREATMENT; QTY: 1PK 25 GALS OF WATER;  ADMIN VIA THE CENTRAL BRENDO LOOP.
     Dates: start: 20210208, end: 20210212

REACTIONS (1)
  - Thrombosis in device [None]
